FAERS Safety Report 11759593 (Version 1)
Quarter: 2015Q4

REPORT INFORMATION
  Report Type: Spontaneous
  Country: US (occurrence: US)
  Receive Date: 20151120
  Receipt Date: 20151120
  Transmission Date: 20160304
  Serious: No
  Sender: FDA-Public Use
  Company Number: US-JNJFOC-20151014836

PATIENT
  Age: 39 Year
  Sex: Female
  Weight: 108.86 kg

DRUGS (3)
  1. MENS ROGAINE EXTRA STRENGTH [Suspect]
     Active Substance: MINOXIDIL
     Indication: ALOPECIA
     Route: 061
  2. AMLODIPINE BESYLATE. [Concomitant]
     Active Substance: AMLODIPINE BESYLATE
     Indication: HYPERTENSION
     Route: 065
  3. MENS ROGAINE EXTRA STRENGTH [Suspect]
     Active Substance: MINOXIDIL
     Route: 061

REACTIONS (6)
  - Blood pressure increased [Recovering/Resolving]
  - Sinusitis [Recovering/Resolving]
  - Headache [Recovering/Resolving]
  - Wrong patient received medication [Not Recovered/Not Resolved]
  - Eye pain [Recovering/Resolving]
  - Hair disorder [Not Recovered/Not Resolved]
